FAERS Safety Report 9697192 (Version 1)
Quarter: 2013Q4

REPORT INFORMATION
  Report Type: Spontaneous
  Country: ES (occurrence: ES)
  Receive Date: 20131120
  Receipt Date: 20131120
  Transmission Date: 20140711
  Serious: Yes (Hospitalization)
  Sender: FDA-Public Use
  Company Number: ES-ROCHE-1301567

PATIENT
  Age: 86 Year
  Sex: Female

DRUGS (9)
  1. ZELBORAF [Suspect]
     Indication: METASTATIC MALIGNANT MELANOMA
     Route: 048
     Dates: start: 20130821, end: 20130901
  2. ANAGASTRA [Concomitant]
     Route: 048
  3. DIGOXINA [Concomitant]
     Route: 048
  4. ELECOR [Concomitant]
     Route: 048
  5. EMCONCOR COR [Concomitant]
     Route: 048
  6. PRAREDUCT [Concomitant]
     Route: 048
  7. SEGURIL [Concomitant]
     Route: 048
  8. TROMALYT [Concomitant]
     Route: 048
  9. XARELTO [Concomitant]
     Route: 048

REACTIONS (1)
  - Renal failure chronic [Unknown]
